FAERS Safety Report 9278902 (Version 1)
Quarter: 2013Q2

REPORT INFORMATION
  Report Type: Spontaneous
  Country: US (occurrence: None)
  Receive Date: 20130506
  Receipt Date: 20130506
  Transmission Date: 20140414
  Serious: Yes (Hospitalization, Disabling)
  Sender: FDA-Public Use
  Company Number: None

PATIENT
  Age: 63 Year
  Sex: Female

DRUGS (1)
  1. THIOTHIXENE [Suspect]
     Route: 048
     Dates: end: 20120917

REACTIONS (4)
  - Tardive dyskinesia [None]
  - Tardive dyskinesia [None]
  - Dyskinesia [None]
  - Pharyngeal dyskinesia [None]
